FAERS Safety Report 8796356 (Version 1)
Quarter: 2012Q4

REPORT INFORMATION
  Report Type: 
  Country: FI (occurrence: FI)
  Receive Date: 20120919
  Receipt Date: 20120919
  Transmission Date: 20130627
  Serious: Yes (Other)
  Sender: FDA-Public Use
  Company Number: FI-PFIZER INC-2012227935

PATIENT
  Age: 24 Year
  Sex: Male

DRUGS (7)
  1. EFEXOR [Suspect]
     Indication: DEPRESSION
     Dosage: 150 mg daily
     Dates: start: 200909, end: 200910
  2. EFEXOR [Suspect]
     Indication: PERSONALITY DISORDER
     Dosage: 150mg and 75mg
     Dates: start: 200910, end: 200912
  3. EFEXOR [Suspect]
     Dosage: 300 mg daily
     Dates: start: 200912, end: 2012
  4. EFEXOR [Suspect]
     Dosage: 225 mg daily
     Dates: start: 2012, end: 2012
  5. EFEXOR [Suspect]
     Dosage: 300mg daily
     Dates: start: 2012, end: 2012
  6. EFEXOR [Suspect]
     Dosage: 375mg daily
     Dates: start: 2012
  7. ASTECON [Concomitant]
     Indication: ASTHMA
     Dosage: UNK

REACTIONS (7)
  - Withdrawal syndrome [Recovered/Resolved]
  - Paraesthesia [Recovered/Resolved]
  - Muscle twitching [Not Recovered/Not Resolved]
  - Impaired driving ability [Recovered/Resolved]
  - Haemoglobin decreased [Unknown]
  - Nausea [Unknown]
  - Drug ineffective [None]
